FAERS Safety Report 18756126 (Version 3)
Quarter: 2021Q4

REPORT INFORMATION
  Report Type: Report from Study
  Country: US (occurrence: US)
  Receive Date: 20210119
  Receipt Date: 20211209
  Transmission Date: 20220303
  Serious: Yes (Other)
  Sender: FDA-Public Use
  Company Number: US-SHIRE-US202024396

PATIENT
  Sex: Female

DRUGS (1)
  1. HUMAN IMMUNOGLOBULIN G\HYALURONIDASE RECOMBINANT HUMAN [Suspect]
     Active Substance: HUMAN IMMUNOGLOBULIN G\HYALURONIDASE RECOMBINANT HUMAN
     Indication: Immunodeficiency common variable
     Dosage: UNK UNK, UNKNOWN
     Route: 065

REACTIONS (6)
  - Bell^s palsy [Recovering/Resolving]
  - Pneumonia [Unknown]
  - Stress [Recovering/Resolving]
  - Chondropathy [Unknown]
  - COVID-19 [Unknown]
  - Sinusitis [Recovering/Resolving]
